FAERS Safety Report 10431594 (Version 3)
Quarter: 2014Q4

REPORT INFORMATION
  Report Type: Spontaneous
  Country: SE (occurrence: SE)
  Receive Date: 20140904
  Receipt Date: 20141028
  Transmission Date: 20150528
  Serious: Yes (Death, Congenital Anomaly)
  Sender: FDA-Public Use
  Company Number: SE-ABBVIE-14P-150-1279307-00

PATIENT

DRUGS (1)
  1. HUMIRA [Suspect]
     Active Substance: ADALIMUMAB
     Indication: MATERNAL EXPOSURE TIMING UNSPECIFIED
     Route: 064

REACTIONS (2)
  - Heart disease congenital [Fatal]
  - Abortion induced [Fatal]

NARRATIVE: CASE EVENT DATE: 2014
